FAERS Safety Report 5688469-6 (Version None)
Quarter: 2008Q1

REPORT INFORMATION
  Report Type: 
  Country: None (occurrence: None)
  Receive Date: 20080331
  Receipt Date: 20080124
  Transmission Date: 20080703
  Serious: Yes (Other)
  Sender: FDA-Public Use
  Company Number: BR-BAYER-200810775LA

PATIENT
  Age: 26 Year
  Sex: Female
  Weight: 64 kg

DRUGS (3)
  1. YASMIN [Suspect]
     Indication: ACNE
     Route: 048
     Dates: start: 20070101, end: 20070701
  2. YASMIN [Suspect]
     Route: 048
     Dates: start: 20060101
  3. MEASLES AND RUBELLA VACCINE [Concomitant]
     Indication: PROPHYLAXIS
     Dates: start: 20080109, end: 20080109

REACTIONS (8)
  - FEELING COLD [None]
  - HYPERTENSION [None]
  - HYPOTENSION [None]
  - LOSS OF CONSCIOUSNESS [None]
  - NAUSEA [None]
  - NO ADVERSE EVENT [None]
  - SYNCOPE [None]
  - VARICELLA [None]
